FAERS Safety Report 12959678 (Version 1)
Quarter: 2016Q4

REPORT INFORMATION
  Report Type: Spontaneous
  Country: US (occurrence: US)
  Receive Date: 20161118
  Receipt Date: 20161118
  Transmission Date: 20170207
  Serious: Yes (Disabling)
  Sender: FDA-Public Use
  Company Number: None

PATIENT
  Age: 53 Year
  Sex: Female
  Weight: 126 kg

DRUGS (15)
  1. HYDROCHLOROTHIAZIDE. [Concomitant]
     Active Substance: HYDROCHLOROTHIAZIDE
  2. CIPROFLAXN [Suspect]
     Active Substance: CIPROFLOXACIN
     Indication: URINARY TRACT INFECTION
     Dosage: ?          QUANTITY:20 TABLET(S);?
     Route: 048
     Dates: start: 20160526, end: 20160604
  3. ALDACTONE [Concomitant]
     Active Substance: SPIRONOLACTONE
  4. MELOXICAM. [Concomitant]
     Active Substance: MELOXICAM
  5. ARMODAFONIL [Concomitant]
     Active Substance: ARMODAFINIL
  6. IBUPROFEN. [Concomitant]
     Active Substance: IBUPROFEN
  7. MULTI VITAMIN- B COMPLEX [Concomitant]
  8. ACETAMINOPHEN. [Concomitant]
     Active Substance: ACETAMINOPHEN
  9. METFORMIN [Concomitant]
     Active Substance: METFORMIN HYDROCHLORIDE
  10. METOPROLOL. [Concomitant]
     Active Substance: METOPROLOL
  11. SIMVASTATIN. [Concomitant]
     Active Substance: SIMVASTATIN
  12. GLIPIZIDE. [Concomitant]
     Active Substance: GLIPIZIDE
  13. GABAPENTIN. [Concomitant]
     Active Substance: GABAPENTIN
  14. ALLIPURINOL [Concomitant]
  15. CPAP MACHINE [Concomitant]

REACTIONS (2)
  - Neuralgia [None]
  - Pain in extremity [None]

NARRATIVE: CASE EVENT DATE: 20160528
